FAERS Safety Report 14392251 (Version 1)
Quarter: 2018Q1

REPORT INFORMATION
  Report Type: Spontaneous
  Country: CH (occurrence: CH)
  Receive Date: 20180116
  Receipt Date: 20180116
  Transmission Date: 20180509
  Serious: Yes (Other)
  Sender: FDA-Public Use
  Company Number: CH-GLAXOSMITHKLINE-CH2018GSK004002

PATIENT
  Age: 90 Year
  Sex: Male

DRUGS (2)
  1. NITRODERM [Suspect]
     Active Substance: NITROGLYCERIN
     Indication: SMOKING CESSATION THERAPY
     Dosage: 10 MG, QD
     Route: 062
  2. NICOTINELL [Suspect]
     Active Substance: NICOTINE
     Indication: SMOKING CESSATION THERAPY
     Dosage: 7 MG, QD
     Route: 062
     Dates: start: 20171206, end: 20171207

REACTIONS (8)
  - Product use complaint [None]
  - Acute pulmonary oedema [Recovered/Resolved]
  - Hypertension [Recovered/Resolved]
  - Malaise [Recovered/Resolved]
  - Product name confusion [Recovered/Resolved]
  - Product packaging confusion [Recovered/Resolved]
  - Wrong drug administered [Recovered/Resolved]
  - Dyspnoea [Recovered/Resolved]

NARRATIVE: CASE EVENT DATE: 20171206
